FAERS Safety Report 7292304-2 (Version None)
Quarter: 2011Q1

REPORT INFORMATION
  Report Type: 
  Country: None (occurrence: None)
  Receive Date: 20110202
  Receipt Date: 20110125
  Transmission Date: 20110831
  Serious: Yes (Hospitalization)
  Sender: FDA-Public Use
  Company Number: 2011SP003426

PATIENT
  Age: 54 Year
  Sex: Male
  Weight: 78 kg

DRUGS (3)
  1. RIBAVIRIN [Suspect]
     Indication: HEPATITIS C
  2. BISOPROLOL FUMARATE [Suspect]
     Indication: PRODUCT USED FOR UNKNOWN INDICATION
  3. PROGRAF [Suspect]
     Indication: LIVER TRANSPLANT

REACTIONS (7)
  - DISEASE PROGRESSION [None]
  - INFECTION [None]
  - CORONARY ARTERY DISEASE [None]
  - POST PROCEDURAL COMPLICATION [None]
  - SURGICAL PROCEDURE REPEATED [None]
  - ANGINA UNSTABLE [None]
  - ENCEPHALOPATHY [None]
